FAERS Safety Report 6583980-8 (Version None)
Quarter: 2010Q1

REPORT INFORMATION
  Report Type: 
  Country: None (occurrence: None)
  Receive Date: 20100213
  Receipt Date: 20100213
  Transmission Date: 20100710
  Serious: Yes (Hospitalization, Other)
  Sender: FDA-Public Use
  Company Number: None

PATIENT
  Age: 50 Year
  Sex: Male
  Weight: 67.4 kg

DRUGS (17)
  1. LEVETIRACETAM [Suspect]
     Indication: CONVULSION
     Dosage: 500MG DAILY PO
     Route: 048
     Dates: start: 20080301, end: 20080926
  2. METOCLOPRAMIDE [Concomitant]
  3. PHENYTOIN [Concomitant]
  4. PREDNISONE [Concomitant]
  5. BACLOFEN [Concomitant]
  6. HYDROCOCODONE/APAP [Concomitant]
  7. METRONIDAZOLE [Concomitant]
  8. CHOLESTYRAMINE [Concomitant]
  9. GABAPENTIN [Concomitant]
  10. LABETALOL HCL [Concomitant]
  11. FLUCONAZOLE [Concomitant]
  12. LISINOPRIL [Concomitant]
  13. ERYTHROPOETIN [Concomitant]
  14. CEFTAZIDIME [Concomitant]
  15. TAMSULOSIN [Concomitant]
  16. MORPHINE [Concomitant]
  17. LORAZEPAM [Concomitant]

REACTIONS (6)
  - APNOEA [None]
  - BASAL GANGLIA HAEMORRHAGE [None]
  - DRUG LEVEL BELOW THERAPEUTIC [None]
  - EPILEPSY [None]
  - METABOLIC ENCEPHALOPATHY [None]
  - TOXIC ENCEPHALOPATHY [None]
